FAERS Safety Report 20232377 (Version 2)
Quarter: 2022Q3

REPORT INFORMATION
  Report Type: Report from Study
  Country: DE (occurrence: None)
  Receive Date: 20211227
  Receipt Date: 20220824
  Transmission Date: 20221027
  Serious: Yes (Hospitalization)
  Sender: FDA-Public Use
  Company Number: DE-ROCHE-2982634

PATIENT
  Age: 71 Year
  Sex: Female
  Weight: 115 kg

DRUGS (18)
  1. ATEZOLIZUMAB [Suspect]
     Active Substance: ATEZOLIZUMAB
     Indication: Triple negative breast cancer
     Dosage: ON 28/OCT/2021 MOST RECENT DOSE ATEZOLIZUMAB PRIOR TO SAE TAKEN
     Route: 041
     Dates: start: 20210624
  2. EPIRUBICIN [Suspect]
     Active Substance: EPIRUBICIN
     Indication: Triple negative breast cancer
     Dosage: ON 28/OCT/2021 MOST RECENT DOSE OF EPIRUBICIN TAKEN PRIOR TO SAE
     Route: 042
  3. CYCLOPHOSPHAMIDE [Suspect]
     Active Substance: CYCLOPHOSPHAMIDE
     Indication: Triple negative breast cancer
     Dosage: ON 28/OCT/2021 MOST RECENT DOSE OF CYCLOPHOSPHAMIDE TAKEN PRIOR TO SAE
     Route: 042
     Dates: start: 20210916
  4. PACLITAXEL [Suspect]
     Active Substance: PACLITAXEL
     Indication: Triple negative breast cancer
     Dosage: ON 09/SEP/2021 MOST RECENT DOSE OF PACLITAXEL TAKEN PRIOR TO SAE
     Route: 042
     Dates: start: 20210624
  5. CARBOPLATIN [Suspect]
     Active Substance: CARBOPLATIN
     Indication: Triple negative breast cancer
     Route: 042
     Dates: start: 20210624
  6. ENALAPRIL [Concomitant]
     Active Substance: ENALAPRIL
     Dates: start: 2000
  7. LATANOPROST [Concomitant]
     Active Substance: LATANOPROST
     Dates: start: 2000
  8. DEXAMETHASONE [Concomitant]
     Active Substance: DEXAMETHASONE
     Dates: start: 20210624
  9. PALONOSETRON [Concomitant]
     Active Substance: PALONOSETRON
     Dates: start: 20210624
  10. APREPITANT [Concomitant]
     Active Substance: APREPITANT
     Dates: start: 20210624
  11. GRANULOCYTE COLONY-STIMULATING FACTOR NOS [Concomitant]
     Active Substance: GRANULOCYTE COLONY-STIMULATING FACTOR NOS
     Dates: start: 20210624
  12. MOVICOL [Concomitant]
     Active Substance: POLYETHYLENE GLYCOL 3350\POTASSIUM CHLORIDE\SODIUM BICARBONATE\SODIUM CHLORIDE
     Dates: start: 20210721
  13. IBUPROFEN [Concomitant]
     Active Substance: IBUPROFEN
     Dates: start: 20210911
  14. FULPHILA [PEGFILGRASTIM] [Concomitant]
     Dates: start: 20210916
  15. MESNA [Concomitant]
     Active Substance: MESNA
     Dates: start: 20210916
  16. JONOSTERIL [Concomitant]
     Dates: start: 20210916
  17. LOPERAMIDE [Concomitant]
     Active Substance: LOPERAMIDE
     Dates: start: 20211014
  18. PANTOPRAZOLE SODIUM [Concomitant]
     Active Substance: PANTOPRAZOLE SODIUM
     Dates: start: 20210723

REACTIONS (1)
  - Thrombosis [Recovered/Resolved with Sequelae]

NARRATIVE: CASE EVENT DATE: 20211117
